FAERS Safety Report 26097908 (Version 1)
Quarter: 2025Q4

REPORT INFORMATION
  Report Type: Spontaneous
  Country: CH (occurrence: CH)
  Receive Date: 20251127
  Receipt Date: 20251127
  Transmission Date: 20260117
  Serious: Yes (Other)
  Sender: BRISTOL-MYERS SQUIBB COMPANY
  Company Number: None

PATIENT
  Age: 49 Year
  Sex: Male
  Weight: 89 kg

DRUGS (2)
  1. YERVOY [Suspect]
     Active Substance: IPILIMUMAB
     Indication: Renal cell carcinoma stage IV
     Dosage: 2 DOSES IN TOTAL
     Route: 042
     Dates: start: 20250912, end: 20251003
  2. OPDIVO [Suspect]
     Active Substance: NIVOLUMAB
     Indication: Renal cell carcinoma stage IV
     Dosage: 2 DOSES IN TOTAL
     Route: 042
     Dates: start: 20250912, end: 20251003

REACTIONS (4)
  - Cytokine release syndrome [Unknown]
  - Hepatitis [Unknown]
  - Colitis [Unknown]
  - Rash macular [Unknown]

NARRATIVE: CASE EVENT DATE: 20251001
